FAERS Safety Report 7327943-3 (Version None)
Quarter: 2011Q1

REPORT INFORMATION
  Report Type: 
  Country: None (occurrence: None)
  Receive Date: 20110303
  Receipt Date: 20110224
  Transmission Date: 20110831
  Serious: Yes (Death, Other)
  Sender: FDA-Public Use
  Company Number: JP-JNJFOC-20110107341

PATIENT
  Age: 56 Year
  Sex: Female

DRUGS (11)
  1. DUROTEP MT [Suspect]
     Route: 062
  2. SOLDACTONE [Concomitant]
     Route: 065
  3. AN UNKNOWN MEDICATION [Concomitant]
     Route: 065
  4. DUROTEP MT [Suspect]
     Dosage: HALF OF 25 UG/HR PATCH
     Route: 062
  5. DUROTEP MT [Suspect]
     Indication: PAIN
     Dosage: ONE AND HALF PATCH
     Route: 062
  6. DUROTEP MT [Suspect]
     Route: 062
  7. PRIMIDONE [Concomitant]
     Route: 048
  8. DUROTEP MT [Suspect]
     Route: 062
  9. LASIX [Concomitant]
     Route: 065
  10. NOVOLIN N [Concomitant]
     Route: 065
  11. DUROTEP MT [Suspect]
     Route: 062

REACTIONS (4)
  - BREAKTHROUGH PAIN [None]
  - RESPIRATORY DEPRESSION [None]
  - PANCREATIC CARCINOMA [None]
  - WRONG TECHNIQUE IN DRUG USAGE PROCESS [None]
